FAERS Safety Report 15733221 (Version 1)
Quarter: 2018Q4

REPORT INFORMATION
  Report Type: Spontaneous
  Country: IT (occurrence: IT)
  Receive Date: 20181218
  Receipt Date: 20181218
  Transmission Date: 20190205
  Serious: Yes (Hospitalization)
  Sender: FDA-Public Use
  Company Number: IT-AMGEN-ITASP2018177275

PATIENT
  Age: 41 Year
  Sex: Male

DRUGS (2)
  1. ARANESP [Suspect]
     Active Substance: DARBEPOETIN ALFA
     Indication: ANAEMIA
     Dosage: 150 MUG, QWK
     Route: 058
     Dates: start: 20180821, end: 20181003
  2. RETACRIT [Suspect]
     Active Substance: EPOETIN ALFA-EPBX
     Indication: ANAEMIA
     Dosage: 1 DF (8000 IU/0.8 ML), CYCLICAL
     Route: 058
     Dates: start: 20170721, end: 20180814

REACTIONS (3)
  - Drug ineffective [Unknown]
  - Skin reaction [Unknown]
  - Injection site oedema [Unknown]

NARRATIVE: CASE EVENT DATE: 20180821
